FAERS Safety Report 5392374-2 (Version None)
Quarter: 2007Q3

REPORT INFORMATION
  Report Type: 
  Country: None (occurrence: None)
  Receive Date: 20070720
  Receipt Date: 20070713
  Transmission Date: 20080115
  Serious: Yes (Disabling)
  Sender: FDA-Public Use
  Company Number: A0664005A

PATIENT
  Age: 13 Year
  Sex: Male

DRUGS (4)
  1. LAMICTAL [Suspect]
     Indication: BIPOLAR DISORDER
     Dosage: 100MG PER DAY
     Route: 048
     Dates: start: 20060901
  2. CONCERTA [Concomitant]
  3. CLONIDINE [Concomitant]
  4. PROZAC [Concomitant]

REACTIONS (5)
  - CONVULSION [None]
  - HALLUCINATION, OLFACTORY [None]
  - INFLUENZA [None]
  - SLEEP DISORDER [None]
  - TEMPORAL LOBE EPILEPSY [None]
